FAERS Safety Report 7783563-8 (Version None)
Quarter: 2011Q3

REPORT INFORMATION
  Report Type: 
  Country: None (occurrence: None)
  Receive Date: 20110928
  Receipt Date: 20110818
  Transmission Date: 20111222
  Serious: No
  Sender: FDA-Public Use
  Company Number: US-MYLANLABS-2011S1017298

PATIENT
  Sex: Female

DRUGS (2)
  1. LETROZOLE [Suspect]
     Route: 048
     Dates: start: 20110801
  2. FEMARA [Suspect]
     Route: 048
     Dates: end: 20110801

REACTIONS (1)
  - BLOOD PRESSURE INCREASED [None]
